FAERS Safety Report 4620994-9 (Version None)
Quarter: 2005Q2

REPORT INFORMATION
  Report Type: 
  Country: None (occurrence: None)
  Receive Date: 20050317
  Receipt Date: 20041206
  Transmission Date: 20051028
  Serious: Yes (Other)
  Sender: FDA-Public Use
  Company Number: 2004104893

PATIENT
  Age: 60 Year
  Sex: Female

DRUGS (2)
  1. VFEND [Suspect]
     Indication: ASPERGILLOSIS
     Dosage: ORAL
     Route: 048
  2. ANTIBIOTICS (ANTIBIOTICS) [Suspect]
     Indication: PNEUMONIA

REACTIONS (2)
  - ORAL CANDIDIASIS [None]
  - THERAPEUTIC RESPONSE DECREASED [None]
